FAERS Safety Report 13062596 (Version 1)
Quarter: 2016Q4

REPORT INFORMATION
  Report Type: Report from Study
  Country: ZA (occurrence: ZA)
  Receive Date: 20161226
  Receipt Date: 20161226
  Transmission Date: 20170207
  Serious: Yes (Hospitalization)
  Sender: FDA-Public Use
  Company Number: PHHY2016ZA173732

PATIENT
  Age: 81 Year
  Sex: Female

DRUGS (5)
  1. PANTOPRAZOLE [Suspect]
     Active Substance: PANTOPRAZOLE SODIUM
     Indication: GASTROINTESTINAL DISORDER
     Dosage: 20 MG, UNK
     Route: 048
  2. SERDEP /01011402/ [Suspect]
     Active Substance: SERTRALINE HYDROCHLORIDE
     Indication: NERVOUS SYSTEM DISORDER
     Dosage: 50 MG, UNK
     Route: 065
  3. ADCO ZOPIMED [Suspect]
     Active Substance: ZOPICLONE
     Indication: SEDATIVE THERAPY
     Dosage: 10 MG, UNK
     Route: 065
  4. RIVOTRIL [Suspect]
     Active Substance: CLONAZEPAM
     Indication: SEDATIVE THERAPY
     Dosage: 2 MG, UNK
     Route: 065
  5. TAZLOC [Suspect]
     Active Substance: TELMISARTAN
     Indication: PRODUCT USED FOR UNKNOWN INDICATION
     Dosage: 6.25 MG, UNK
     Route: 065

REACTIONS (1)
  - Gastric ulcer [Unknown]

NARRATIVE: CASE EVENT DATE: 20161212
